FAERS Safety Report 8900644 (Version 1)
Quarter: 2012Q4

REPORT INFORMATION
  Report Type: 
  Country: CA (occurrence: CA)
  Receive Date: 20121109
  Receipt Date: 20121109
  Transmission Date: 20130627
  Serious: Yes (Hospitalization, Other)
  Sender: FDA-Public Use
  Company Number: PHMT2006CA00991

PATIENT
  Sex: Male

DRUGS (10)
  1. SANDOSTATIN LAR [Suspect]
     Indication: GASTROINTESTINAL ANGIODYSPLASIA
     Dosage: 20 mg, once a month
     Dates: start: 20050121
  2. ACEBUTOLOL [Concomitant]
  3. ALLOPURINOL [Concomitant]
  4. ASA [Concomitant]
  5. FERROUS SULFATE [Concomitant]
  6. K-DUR [Concomitant]
  7. NITRO [Concomitant]
     Route: 060
  8. AMLODIPINE BESILATE [Concomitant]
  9. VITAMIN B12 [Concomitant]
  10. SIMVASTATIN [Concomitant]

REACTIONS (8)
  - Angina pectoris [Unknown]
  - Chest pain [Unknown]
  - Palpitations [Unknown]
  - Blood glucose increased [Unknown]
  - Blood pressure increased [Unknown]
  - Pain in extremity [Unknown]
  - Heart rate decreased [Unknown]
  - Injection site pain [Unknown]
